FAERS Safety Report 4550521-6 (Version None)
Quarter: 2004Q4

REPORT INFORMATION
  Report Type: 
  Country: None (occurrence: None)
  Receive Date: 20041217
  Receipt Date: 20040922
  Transmission Date: 20050328
  Serious: No
  Sender: FDA-Public Use
  Company Number: 2004-BP-08676BP

PATIENT
  Age: 68 Year
  Sex: Male
  Weight: 86.2 kg

DRUGS (2)
  1. SPIRIVA [Suspect]
     Dosage: 18 MCG (18 MCG), IH
     Route: 055
  2. SEREVENT [Concomitant]

REACTIONS (1)
  - ATRIAL FIBRILLATION [None]
